FAERS Safety Report 15061229 (Version 1)
Quarter: 2018Q2

REPORT INFORMATION
  Report Type: Spontaneous
  Country: US (occurrence: US)
  Receive Date: 20180625
  Receipt Date: 20180625
  Transmission Date: 20180711
  Serious: Yes (Other)
  Sender: FDA-Public Use
  Company Number: US-ROCHE-2049634

PATIENT
  Age: 55 Year
  Sex: Male

DRUGS (1)
  1. XELODA [Suspect]
     Active Substance: CAPECITABINE
     Indication: COLON CANCER
     Dosage: FOR 14DAYS; ONGOING: YES
     Route: 048
     Dates: start: 20171130

REACTIONS (3)
  - Oropharyngeal pain [Unknown]
  - Nausea [Unknown]
  - Decreased appetite [Unknown]
